FAERS Safety Report 8232833-8 (Version None)
Quarter: 2012Q1

REPORT INFORMATION
  Report Type: 
  Country: None (occurrence: None)
  Receive Date: 20120323
  Receipt Date: 20120314
  Transmission Date: 20120608
  Serious: Yes (Other)
  Sender: FDA-Public Use
  Company Number: JP-ASTRAZENECA-2012SE18458

PATIENT
  Age: 33 Day
  Sex: Male
  Weight: 1.8 kg

DRUGS (1)
  1. TENORMIN [Suspect]
     Dosage: DOSE UNKNOWN
     Route: 064

REACTIONS (2)
  - DEAFNESS BILATERAL [None]
  - ELECTROCARDIOGRAM QT PROLONGED [None]
